FAERS Safety Report 11656400 (Version 6)
Quarter: 2016Q2

REPORT INFORMATION
  Report Type: Report from Study
  Country: NL (occurrence: NL)
  Receive Date: 20151023
  Receipt Date: 20160427
  Transmission Date: 20160815
  Serious: Yes (Hospitalization)
  Sender: FDA-Public Use
  Company Number: NL-SA-2014SA157005

PATIENT
  Age: 59 Year
  Sex: Male
  Weight: 86 kg

DRUGS (14)
  1. DIOVAN [Suspect]
     Active Substance: VALSARTAN
     Route: 065
     Dates: start: 20100928, end: 20140516
  2. DIOVAN [Suspect]
     Active Substance: VALSARTAN
     Route: 065
     Dates: start: 20141028, end: 20141211
  3. SAR236553 [Suspect]
     Active Substance: ALIROCUMAB
     Indication: HYPERCHOLESTEROLAEMIA
     Route: 058
     Dates: start: 20140827, end: 20141008
  4. SPIRONOLACTONE. [Suspect]
     Active Substance: SPIRONOLACTONE
     Route: 065
     Dates: start: 20140516, end: 20141014
  5. DIOVAN [Suspect]
     Active Substance: VALSARTAN
     Route: 065
     Dates: start: 20100201, end: 20100928
  6. DIOVAN [Suspect]
     Active Substance: VALSARTAN
     Route: 065
     Dates: start: 20140516, end: 20141014
  7. ASCAL [Concomitant]
     Active Substance: CARBASALATE
     Route: 065
     Dates: start: 20040310
  8. ATORVASTATIN [Suspect]
     Active Substance: ATORVASTATIN
     Indication: HYPERCHOLESTEROLAEMIA
     Route: 048
     Dates: start: 20010101
  9. SPIRONOLACTONE. [Suspect]
     Active Substance: SPIRONOLACTONE
     Route: 065
     Dates: start: 20141212
  10. DIOVAN [Suspect]
     Active Substance: VALSARTAN
     Route: 065
     Dates: start: 20091126, end: 20100201
  11. EMCOR [Concomitant]
     Active Substance: BISOPROLOL
     Route: 065
     Dates: start: 20091126
  12. SPIRONOLACTONE. [Suspect]
     Active Substance: SPIRONOLACTONE
     Route: 065
     Dates: start: 20100929, end: 20130808
  13. BRILIQUE [Concomitant]
     Active Substance: TICAGRELOR
     Route: 065
     Dates: start: 20130906, end: 20141014
  14. OMEPRAZOLE. [Concomitant]
     Active Substance: OMEPRAZOLE
     Route: 065
     Dates: start: 20130906

REACTIONS (2)
  - Normochromic normocytic anaemia [Recovered/Resolved]
  - Acute kidney injury [Not Recovered/Not Resolved]

NARRATIVE: CASE EVENT DATE: 20140916
